FAERS Safety Report 5542372-0 (Version None)
Quarter: 2007Q4

REPORT INFORMATION
  Report Type: 
  Country: None (occurrence: None)
  Receive Date: 20071210
  Receipt Date: 20070207
  Transmission Date: 20080405
  Serious: No
  Sender: FDA-Public Use
  Company Number: US-AMGEN-KDL202456

PATIENT
  Sex: Female

DRUGS (6)
  1. ENBREL [Suspect]
     Indication: PSORIATIC ARTHROPATHY
     Route: 058
     Dates: start: 20030327
  2. ENBREL [Suspect]
     Indication: PSORIASIS
  3. METHOTREXATE [Concomitant]
     Route: 048
  4. CLOBETASOL PROPIONATE [Concomitant]
     Route: 061
  5. DOVONEX [Concomitant]
     Route: 061
  6. TEMOVATE [Concomitant]

REACTIONS (13)
  - ANAEMIA [None]
  - ASTHENIA [None]
  - BLOOD IRON DECREASED [None]
  - DEPRESSION [None]
  - DIARRHOEA [None]
  - FAECES DISCOLOURED [None]
  - FATIGUE [None]
  - PHARYNGITIS [None]
  - PHARYNGOLARYNGEAL PAIN [None]
  - PSORIASIS [None]
  - PSORIATIC ARTHROPATHY [None]
  - TOOTH INFECTION [None]
  - VISION BLURRED [None]
